FAERS Safety Report 12739715 (Version 1)
Quarter: 2016Q3

REPORT INFORMATION
  Report Type: Spontaneous
  Country: GB (occurrence: GB)
  Receive Date: 20160913
  Receipt Date: 20160913
  Transmission Date: 20161109
  Serious: Yes (Other)
  Sender: FDA-Public Use
  Company Number: GB-MYLANLABS-2016M1037876

PATIENT

DRUGS (9)
  1. ASPIRIN                            /00002701/ [Concomitant]
     Active Substance: ASPIRIN
     Dosage: UNK (CURRENTLY TAKING, LONG TERM MEDICATION)
  2. ALFUZOSIN [Concomitant]
     Active Substance: ALFUZOSIN
     Dosage: UNK (CURRENTLY TAKING, LONG TERM MEDICATION)
  3. QUININE [Concomitant]
     Active Substance: QUININE
     Dosage: UNK (CURRENTLY TAKING, LONG TERM MEDICATION)
  4. COLECALCIFEROL [Concomitant]
     Active Substance: CHOLECALCIFEROL
     Dosage: UNK (CURRENTLY TAKING, LONG TERM MEDICATION)
  5. IBANDRONIC ACID [Concomitant]
     Active Substance: IBANDRONIC ACID
     Dosage: UNK (CURRENTLY TAKING, LONG TERM MEDICATION)
  6. OMEPRAZOLE. [Suspect]
     Active Substance: OMEPRAZOLE
     Dosage: UNK
  7. SIMVASTATIN. [Suspect]
     Active Substance: SIMVASTATIN
     Dosage: UNK
  8. EPOETIN ALFA [Concomitant]
     Active Substance: ERYTHROPOIETIN
     Dosage: UNK (CURRENTLY TAKING, LONG TERM MEDICATION)
  9. OXYCODONE [Concomitant]
     Active Substance: OXYCODONE
     Dosage: UNK (CURRENTLY TAKING, LONG TERM MEDICATION)

REACTIONS (1)
  - Systemic lupus erythematosus [Unknown]
